FAERS Safety Report 9667743 (Version 1)
Quarter: 2013Q4

REPORT INFORMATION
  Report Type: Spontaneous
  Country: US (occurrence: US)
  Receive Date: 20131104
  Receipt Date: 20131104
  Transmission Date: 20140711
  Serious: No
  Sender: FDA-Public Use
  Company Number: US-ENDO PHARMACEUTICALS INC.-PRED20110004

PATIENT
  Sex: Male

DRUGS (2)
  1. PREDNISONE [Suspect]
     Indication: PERICARDIAL EFFUSION
     Dosage: UNK
  2. AMARYL [Concomitant]
     Indication: PERICARDIAL EFFUSION
     Dosage: UNK

REACTIONS (1)
  - Blood glucose increased [Unknown]
